FAERS Safety Report 14239920 (Version 1)
Quarter: 2017Q4

REPORT INFORMATION
  Report Type: Spontaneous
  Country: US (occurrence: US)
  Receive Date: 20171128
  Receipt Date: 20171128
  Transmission Date: 20180321
  Serious: Yes (Disabling, Other)
  Sender: FDA-Public Use
  Company Number: None

PATIENT
  Age: 54 Year
  Sex: Female
  Weight: 94.95 kg

DRUGS (1)
  1. MIRALAX [Suspect]
     Active Substance: POLYETHYLENE GLYCOL 3350
     Indication: CONSTIPATION
     Dates: start: 20070901, end: 20171124

REACTIONS (5)
  - Muscle spasms [None]
  - Neurological symptom [None]
  - Dyspnoea [None]
  - Tinnitus [None]
  - Anxiety [None]

NARRATIVE: CASE EVENT DATE: 20130807
